FAERS Safety Report 13740948 (Version 7)
Quarter: 2019Q3

REPORT INFORMATION
  Report Type: Report from Study
  Country: JP (occurrence: JP)
  Receive Date: 20170711
  Receipt Date: 20190709
  Transmission Date: 20191004
  Serious: Yes (Hospitalization, Other)
  Sender: FDA-Public Use
  Company Number: JP-BRISTOL-MYERS SQUIBB COMPANY-BMS-2017-060678

PATIENT
  Age: 63 Year
  Sex: Male
  Weight: 42 kg

DRUGS (1)
  1. NIVOLUMAB [Suspect]
     Active Substance: NIVOLUMAB
     Indication: MALIGNANT MELANOMA
     Dosage: 3 MG/KG, Q2WK
     Route: 041
     Dates: start: 20161129, end: 20170228

REACTIONS (2)
  - Hepatic function abnormal [Unknown]
  - Chondritis [Recovering/Resolving]

NARRATIVE: CASE EVENT DATE: 201703
